FAERS Safety Report 12579221 (Version 1)
Quarter: 2016Q3

REPORT INFORMATION
  Report Type: Report from Study
  Country: US (occurrence: US)
  Receive Date: 20160721
  Receipt Date: 20160721
  Transmission Date: 20161109
  Serious: Yes (Death, Hospitalization, Other)
  Sender: FDA-Public Use
  Company Number: US-ROCHE-1036866

PATIENT
  Age: 75 Year
  Sex: Female
  Weight: 73.6 kg

DRUGS (8)
  1. VISMODEGIB [Suspect]
     Active Substance: VISMODEGIB
     Dosage: COURSE 2
     Route: 048
     Dates: start: 20111031
  2. ENOXAPARIN SODIUM. [Suspect]
     Active Substance: ENOXAPARIN SODIUM
     Route: 065
  3. VISMODEGIB [Suspect]
     Active Substance: VISMODEGIB
     Dosage: COURSE 3
     Route: 048
     Dates: start: 20111212
  4. VISMODEGIB [Suspect]
     Active Substance: VISMODEGIB
     Dosage: COURSE 5
     Route: 048
     Dates: start: 20120123, end: 20120213
  5. ENOXAPARIN SODIUM. [Suspect]
     Active Substance: ENOXAPARIN SODIUM
     Indication: DEEP VEIN THROMBOSIS
     Dosage: LAST DOSE 08 JAN 2012
     Route: 065
  6. VISMODEGIB [Suspect]
     Active Substance: VISMODEGIB
     Indication: PANCREATIC CARCINOMA
     Dosage: LAST DOSE PRIOR TO MULTIORGAN FAILURE: 09 JAN 2012, TOTAL DOSE ADMINISTERED 2250 MG?COURSE 1
     Route: 048
     Dates: start: 20111003
  7. VISMODEGIB [Suspect]
     Active Substance: VISMODEGIB
     Dosage: COURSE 4
     Route: 048
     Dates: start: 20111227
  8. GEMCITABINE [Suspect]
     Active Substance: GEMCITABINE\GEMCITABINE HYDROCHLORIDE
     Indication: PANCREATIC CARCINOMA
     Dosage: LAST DOSE PRIOR TO SAE 02 JAN 2012, TOTAL DOSE ADMINISTERED 3600 MG,OVER 30 MINUTES ON DAYS 1, 8, 15
     Route: 042
     Dates: start: 20111003

REACTIONS (7)
  - Platelet count decreased [Unknown]
  - Anaemia [Unknown]
  - Embolism [Recovered/Resolved]
  - Fatigue [Unknown]
  - Hyperglycaemia [Unknown]
  - Multiple organ dysfunction syndrome [Fatal]
  - Decreased appetite [Unknown]

NARRATIVE: CASE EVENT DATE: 20111223
